FAERS Safety Report 7565866-5 (Version None)
Quarter: 2011Q2

REPORT INFORMATION
  Report Type: 
  Country: None (occurrence: None)
  Receive Date: 20110617
  Receipt Date: 20101012
  Transmission Date: 20111010
  Serious: Yes (Hospitalization)
  Sender: FDA-Public Use
  Company Number: 2010-3418

PATIENT
  Sex: Female

DRUGS (4)
  1. ENTACAPONE [Concomitant]
  2. L-DOPA (LEVODOPA) [Concomitant]
  3. APO-GO AMPOULES (APOMORPHINE HYDROCHLORIDE) (APOMORPHINE HYDROCHLORIDE [Suspect]
     Indication: PARKINSON'S DISEASE
     Dosage: SUBCUTANEOUS
     Route: 058
     Dates: start: 20080101, end: 20100501
  4. CARBIDOPA (CARBIDOPA) [Concomitant]

REACTIONS (2)
  - HALLUCINATION, AUDITORY [None]
  - HALLUCINATION, VISUAL [None]
